FAERS Safety Report 7069190-9 (Version None)
Quarter: 2010Q4

REPORT INFORMATION
  Report Type: 
  Country: None (occurrence: None)
  Receive Date: 20101028
  Receipt Date: 20101021
  Transmission Date: 20110411
  Serious: Yes (Other)
  Sender: FDA-Public Use
  Company Number: B0678076A

PATIENT
  Sex: Female

DRUGS (7)
  1. SERETIDE [Suspect]
     Indication: ASTHMA
     Route: 055
     Dates: start: 20100927, end: 20100927
  2. ZITHROMAX [Suspect]
     Indication: SPUTUM PURULENT
     Dosage: 500MG PER DAY
     Route: 048
     Dates: start: 20100927, end: 20100927
  3. HUSTAZOL [Concomitant]
     Route: 048
  4. COUGHNOL [Concomitant]
     Route: 048
  5. PREDNISOLONE [Concomitant]
     Route: 065
  6. KIPRES [Concomitant]
     Route: 048
  7. MUCOSOLVAN [Concomitant]
     Indication: PRODUCTIVE COUGH
     Dosage: 45MG PER DAY
     Route: 048
     Dates: start: 20100927

REACTIONS (7)
  - BLOOD PRESSURE INCREASED [None]
  - FEELING ABNORMAL [None]
  - HEART RATE INCREASED [None]
  - HYPERHIDROSIS [None]
  - PALPITATIONS [None]
  - SYNCOPE [None]
  - VOMITING [None]
